FAERS Safety Report 4290590-4 (Version None)
Quarter: 2004Q1

REPORT INFORMATION
  Report Type: 
  Country: None (occurrence: None)
  Receive Date: 20040210
  Receipt Date: 20040202
  Transmission Date: 20041129
  Serious: Yes (Life-Threatening)
  Sender: FDA-Public Use
  Company Number: 7335

PATIENT
  Age: 83 Year
  Sex: Female

DRUGS (5)
  1. METHYLENE BLUE [Suspect]
     Indication: PARATHYROIDECTOMY
     Dosage: 385 MG ONCE IV
     Route: 042
     Dates: start: 20040121, end: 20040121
  2. FRUSEMIDE [Concomitant]
  3. HYDROCORTISONE [Concomitant]
  4. CO-DANTHRAMER [Concomitant]
  5. PARACETAMOL [Concomitant]

REACTIONS (2)
  - COMA [None]
  - HYPERVENTILATION [None]
